FAERS Safety Report 11792288 (Version 3)
Quarter: 2016Q1

REPORT INFORMATION
  Report Type: Spontaneous
  Country: JP (occurrence: JP)
  Receive Date: 20151201
  Receipt Date: 20160122
  Transmission Date: 20160525
  Serious: Yes (Life-Threatening, Disabling, Other)
  Sender: FDA-Public Use
  Company Number: JP-009507513-1511JPN005450

PATIENT
  Age: 67 Year
  Sex: Male
  Weight: 55 kg

DRUGS (14)
  1. FENTANYL CITRATE. [Concomitant]
     Active Substance: FENTANYL CITRATE
     Indication: ANALGESIC THERAPY
     Dosage: 0.3 MG, QD (TOTAL AMOUNT 6 ML)
     Route: 042
     Dates: start: 20150917, end: 20150917
  2. WYSTAL [Concomitant]
     Active Substance: CEFOPERAZONE SODIUM\SULBACTAM SODIUM
     Indication: INFECTION PROPHYLAXIS
     Dosage: 0.5 G, BID
     Route: 042
     Dates: start: 20150917, end: 20150917
  3. DROLEPTAN [Concomitant]
     Active Substance: DROPERIDOL
     Indication: PAIN MANAGEMENT
     Dosage: 1.0 ML, QD (DIVIDED DOSE FREQUENCY UNKNOWN)
     Route: 008
     Dates: start: 20150917, end: 20150920
  4. NEXIUM [Concomitant]
     Active Substance: ESOMEPRAZOLE MAGNESIUM
     Dosage: 20 MG, QD
     Route: 048
     Dates: end: 20150917
  5. PROPOFOL. [Concomitant]
     Active Substance: PROPOFOL
     Indication: ANALGESIC THERAPY
     Dosage: 1000 MG, QD (DIVIDED DOSE FREQUENCY UNKNOWN)
     Route: 042
     Dates: start: 20150917, end: 20150917
  6. MICARDIS [Concomitant]
     Active Substance: TELMISARTAN
     Indication: BLOOD PRESSURE MANAGEMENT
     Dosage: 40 MG, QD
     Route: 048
     Dates: end: 20150917
  7. POPSCAINE [Concomitant]
     Active Substance: LEVOBUPIVACAINE HYDROCHLORIDE
     Indication: PAIN MANAGEMENT
     Dosage: 300 ML, QD (DIVIDED DOSE FREQUENCY UNKNOWN)
     Route: 008
     Dates: start: 20150917, end: 20150920
  8. ALLEGRA [Concomitant]
     Active Substance: FEXOFENADINE HYDROCHLORIDE
     Dosage: 60 MG, QD
     Route: 048
     Dates: end: 20150917
  9. BRIDION [Suspect]
     Active Substance: SUGAMMADEX
     Indication: NEUROMUSCULAR BLOCKADE REVERSAL
     Dosage: 200 MG, BID
     Route: 042
     Dates: start: 20150917, end: 20150917
  10. MORPHINE HYDROCHLORIDE [Concomitant]
     Active Substance: MORPHINE HYDROCHLORIDE
     Dosage: DAILY DOSE UNKNOWN
     Route: 065
  11. NICARDIPINE HYDROCHLORIDE. [Concomitant]
     Active Substance: NICARDIPINE HYDROCHLORIDE
     Indication: BLOOD PRESSURE MANAGEMENT
     Dosage: 2 ML, QH
     Route: 042
     Dates: start: 20150917, end: 20150919
  12. DEXTROSE. [Concomitant]
     Active Substance: DEXTROSE
     Dosage: DAILY DOSE UNKNOWN
     Route: 051
     Dates: start: 20150917
  13. ESLAX [Suspect]
     Active Substance: ROCURONIUM BROMIDE
     Indication: NEUROMUSCULAR BLOCKING THERAPY
     Dosage: 200 MG/ HR, QD (CONTINUOUS INFUSION)
     Route: 042
     Dates: start: 20150917, end: 20150917
  14. TAKEPRON [Concomitant]
     Active Substance: LANSOPRAZOLE
     Indication: GASTRITIS PROPHYLAXIS
     Dosage: 30 MG, QD
     Route: 042
     Dates: start: 20150917, end: 20150918

REACTIONS (2)
  - Hypoglycaemia [Recovering/Resolving]
  - Hypotonia [Recovered/Resolved]

NARRATIVE: CASE EVENT DATE: 20150917
